FAERS Safety Report 6180266-0 (Version None)
Quarter: 2009Q2

REPORT INFORMATION
  Report Type: 
  Country: None (occurrence: None)
  Receive Date: 20090501
  Receipt Date: 20090421
  Transmission Date: 20091009
  Serious: Yes (Hospitalization, Other)
  Sender: FDA-Public Use
  Company Number: 2009AP001624

PATIENT
  Age: 55 Year
  Sex: Female

DRUGS (9)
  1. TERBINAFINE HCL [Suspect]
     Indication: FUNGAL INFECTION
     Dosage: 200 MG;PO;QD
     Route: 048
     Dates: start: 20090202, end: 20090216
  2. BECLOMETHASONE DIPROPIONATE [Concomitant]
  3. CETIRIZINE HCL [Concomitant]
  4. FLOXACILLIN SODIUM [Concomitant]
  5. HYDROXYCHLOROQUINE SULFATE [Concomitant]
  6. LANSOPRAZOLE [Concomitant]
  7. MIRTAZAPINE [Concomitant]
  8. PREDNISOLONE [Concomitant]
  9. RISEDRONIC ACID (RISEDRONIC ACID) [Concomitant]

REACTIONS (2)
  - ERYTHEMA MULTIFORME [None]
  - RASH ERYTHEMATOUS [None]
